FAERS Safety Report 11705961 (Version 2)
Quarter: 2015Q4

REPORT INFORMATION
  Report Type: Report from Study
  Country: US (occurrence: US)
  Receive Date: 20151106
  Receipt Date: 20151110
  Transmission Date: 20160304
  Serious: Yes (Hospitalization)
  Sender: FDA-Public Use
  Company Number: US-BAYER-2015-456267

PATIENT
  Age: 50 Year
  Sex: Female

DRUGS (1)
  1. BETASERON [Suspect]
     Active Substance: INTERFERON BETA-1B
     Indication: MULTIPLE SCLEROSIS
     Dosage: 0.25 MG, QOD
     Route: 058
     Dates: start: 1993

REACTIONS (5)
  - Renal failure [None]
  - Fatigue [None]
  - Drug dose omission [None]
  - Injection site erythema [Not Recovered/Not Resolved]
  - Memory impairment [None]

NARRATIVE: CASE EVENT DATE: 1993
